FAERS Safety Report 4954509-2 (Version None)
Quarter: 2006Q1

REPORT INFORMATION
  Report Type: 
  Country: None (occurrence: None)
  Receive Date: 20060322
  Receipt Date: 20060322
  Transmission Date: 20060701
  Serious: Yes (Death, Other)
  Sender: FDA-Public Use
  Company Number: 2006033837

PATIENT
  Age: 83 Year
  Sex: Male

DRUGS (6)
  1. AMLODIPINE [Suspect]
     Indication: HYPERTENSION
     Dosage: 10 MG (5 MG, 2 IN 2 D), ORAL
     Route: 048
     Dates: start: 20040212, end: 20040224
  2. PHENOBAL                   (PHENOBARBITAL) [Suspect]
     Indication: CONVULSION
     Dosage: 100 MG (50 MG, 2 IN 1 D), ORAL
     Route: 048
     Dates: start: 20040217, end: 20040224
  3. LEVOFLOXACIN [Suspect]
     Indication: URINARY TRACT INFECTION
     Dosage: 300 MG (100 MG, 3 IN 1 D), ORAL
     Route: 048
     Dates: start: 20040223, end: 20040224
  4. FAMOTIDINE [Suspect]
     Indication: PROPHYLAXIS AGAINST GASTROINTESTINAL ULCER
     Dosage: 40 MG (20 MG, 2 IN 1 D), ORAL
     Route: 048
     Dates: start: 20040217, end: 20040224
  5. ADONA     (CARBAZOCHROME SODIM SULFONATE) [Concomitant]
  6. TRANSAMIN        (TRANEXAMIC ACID) [Concomitant]

REACTIONS (5)
  - CONVULSION [None]
  - SEPSIS [None]
  - TOXIC EPIDERMAL NECROLYSIS [None]
  - URINARY TRACT INFECTION [None]
  - URINE ABNORMALITY [None]
